FAERS Safety Report 9068153 (Version 2)
Quarter: 2013Q1

REPORT INFORMATION
  Report Type: Spontaneous
  Country: US (occurrence: US)
  Receive Date: 20130215
  Receipt Date: 20130225
  Transmission Date: 20140127
  Serious: No
  Sender: FDA-Public Use
  Company Number: US-BIOGENIDEC-2013BI010813

PATIENT
  Age: 51 None
  Sex: Female

DRUGS (1)
  1. AVONEX [Suspect]
     Indication: MULTIPLE SCLEROSIS
     Route: 030
     Dates: start: 20111208

REACTIONS (11)
  - Fall [Recovered/Resolved]
  - Contusion [Recovered/Resolved]
  - Drug dose omission [Recovered/Resolved]
  - Joint injury [Unknown]
  - Sinusitis [Unknown]
  - Ear infection [Unknown]
  - Pharyngitis [Unknown]
  - Influenza like illness [Recovered/Resolved]
  - Asthenia [Unknown]
  - Nausea [Unknown]
  - Vomiting [Unknown]
